FAERS Safety Report 14263952 (Version 1)
Quarter: 2017Q4

REPORT INFORMATION
  Report Type: Spontaneous
  Country: US (occurrence: US)
  Receive Date: 20171208
  Receipt Date: 20171208
  Transmission Date: 20180321
  Serious: No
  Sender: FDA-Public Use
  Company Number: US-PTC THERAPEUTICS, INC.-US-2017PTC001358

PATIENT

DRUGS (3)
  1. VITAMIN D                          /00107901/ [Concomitant]
     Active Substance: ERGOCALCIFEROL
     Indication: PRODUCT USED FOR UNKNOWN INDICATION
     Dosage: UNK
  2. EMFLAZA [Suspect]
     Active Substance: DEFLAZACORT
     Dosage: 5 ML, QD
     Route: 048
  3. EMFLAZA [Suspect]
     Active Substance: DEFLAZACORT
     Indication: DUCHENNE MUSCULAR DYSTROPHY
     Dosage: 0.7 ML, EVERY SATURDAY/SUNDAY
     Route: 048
     Dates: start: 20170625

REACTIONS (2)
  - Weight increased [Not Recovered/Not Resolved]
  - Hair growth abnormal [Not Recovered/Not Resolved]

NARRATIVE: CASE EVENT DATE: 20170725
